FAERS Safety Report 9097421 (Version 2)
Quarter: 2013Q1

REPORT INFORMATION
  Report Type: Spontaneous
  Country: IT (occurrence: IT)
  Receive Date: 20130212
  Receipt Date: 20130302
  Transmission Date: 20140127
  Serious: Yes (Life-Threatening)
  Sender: FDA-Public Use
  Company Number: IT-TEVA-385377ISR

PATIENT
  Age: 50 Year
  Sex: Male

DRUGS (1)
  1. OLANZAPINA TEVA [Suspect]
     Dosage: 10 MILLIGRAM DAILY;
     Route: 048
     Dates: start: 20121113, end: 20121120

REACTIONS (7)
  - Confusional state [Recovered/Resolved]
  - Psychotic disorder [Recovered/Resolved]
  - Sleep disorder [Recovered/Resolved]
  - Emotional disorder [Recovered/Resolved]
  - Irritability [Recovered/Resolved]
  - Thinking abnormal [Recovered/Resolved]
  - Mood altered [Recovered/Resolved]
